FAERS Safety Report 6453187-3 (Version None)
Quarter: 2009Q4

REPORT INFORMATION
  Report Type: 
  Country: None (occurrence: None)
  Receive Date: 20091123
  Receipt Date: 20091123
  Transmission Date: 20100525
  Serious: No
  Sender: FDA-Public Use
  Company Number: None

PATIENT
  Sex: Male
  Weight: 91.8 kg

DRUGS (2)
  1. CASODEX [Suspect]
     Dosage: 3100 MG
  2. LEUPROLIDE ACETATE [Suspect]
     Dosage: 30 MG

REACTIONS (1)
  - ABDOMINAL PAIN [None]
